FAERS Safety Report 5804670-2 (Version None)
Quarter: 2008Q3

REPORT INFORMATION
  Report Type: 
  Country: None (occurrence: None)
  Receive Date: 20080709
  Receipt Date: 20080703
  Transmission Date: 20090109
  Serious: Yes (Death)
  Sender: FDA-Public Use
  Company Number: US-BRISTOL-MYERS SQUIBB COMPANY-14209373

PATIENT
  Age: 56 Year
  Sex: Male

DRUGS (1)
  1. SPRYCEL [Suspect]
     Indication: CHRONIC MYELOMONOCYTIC LEUKAEMIA
     Dosage: STARTED AT A DOSE OF 20MG DAILY ON 19MAY08 INCREASED TO 40MG ON 22MAY08
     Dates: start: 20080519

REACTIONS (1)
  - MULTI-ORGAN FAILURE [None]
